FAERS Safety Report 7366999-9 (Version None)
Quarter: 2011Q1

REPORT INFORMATION
  Report Type: 
  Country: None (occurrence: None)
  Receive Date: 20110322
  Receipt Date: 20110311
  Transmission Date: 20110831
  Serious: Yes (Other)
  Sender: FDA-Public Use
  Company Number: US-PFIZER INC-2007036138

PATIENT
  Sex: Female

DRUGS (1)
  1. NEURONTIN [Suspect]
     Indication: NEURALGIA
     Dosage: UNK,
     Dates: start: 20020101

REACTIONS (8)
  - CARDIAC FAILURE CONGESTIVE [None]
  - BLOOD CHOLESTEROL INCREASED [None]
  - SUICIDAL IDEATION [None]
  - OVERDOSE [None]
  - MICTURITION DISORDER [None]
  - VIOLENCE-RELATED SYMPTOM [None]
  - SUICIDE ATTEMPT [None]
  - DEPRESSION [None]
